FAERS Safety Report 14952771 (Version 6)
Quarter: 2020Q3

REPORT INFORMATION
  Report Type: Report from Study
  Country: TR (occurrence: TR)
  Receive Date: 20180530
  Receipt Date: 20180801
  Transmission Date: 20201105
  Serious: Yes (Hospitalization)
  Sender: FDA-Public Use
  Company Number: TR-JNJFOC-20180533330

PATIENT
  Age: 70 Year
  Sex: Female
  Weight: 69 kg

DRUGS (15)
  1. CARFILZOMIB [Suspect]
     Active Substance: CARFILZOMIB
     Indication: PLASMA CELL MYELOMA
     Route: 042
     Dates: start: 20171018
  2. ARIMIDEX [Concomitant]
     Active Substance: ANASTROZOLE
     Route: 065
     Dates: start: 201309
  3. MONTELUKAST [Concomitant]
     Active Substance: MONTELUKAST SODIUM
     Route: 048
     Dates: start: 20171018
  4. METHYLPREDNISOLONE. [Concomitant]
     Active Substance: METHYLPREDNISOLONE
     Route: 048
     Dates: start: 20171020
  5. DARATUMUMAB [Suspect]
     Active Substance: DARATUMUMAB
     Indication: PLASMA CELL MYELOMA
     Route: 042
     Dates: start: 20171018
  6. ZOLENAT [Concomitant]
     Route: 042
     Dates: start: 20171106
  7. PARACETAMOL [Concomitant]
     Active Substance: ACETAMINOPHEN
     Route: 048
     Dates: start: 20171018
  8. AVIL [Concomitant]
     Active Substance: PHENIRAMINE
     Route: 048
  9. OXOPANE [Concomitant]
     Route: 065
     Dates: start: 20171031
  10. DEVIT 3 [Concomitant]
     Route: 065
     Dates: start: 20171107
  11. NEXIUM [Concomitant]
     Active Substance: ESOMEPRAZOLE MAGNESIUM
     Route: 048
     Dates: start: 20171025
  12. ASIVIRAL [Concomitant]
     Active Substance: ACYCLOVIR
     Route: 048
  13. DEXAMETHASONE. [Concomitant]
     Active Substance: DEXAMETHASONE
     Indication: PLASMA CELL MYELOMA
     Route: 048
     Dates: start: 20171018
  14. LANSAZOL [Concomitant]
     Active Substance: LANSOPRAZOLE
     Route: 065
  15. ADVANTAN M [Concomitant]
     Route: 065
     Dates: start: 20180111

REACTIONS (1)
  - Cardiac failure [Recovered/Resolved]

NARRATIVE: CASE EVENT DATE: 20180519
